FAERS Safety Report 16312160 (Version 2)
Quarter: 2019Q2

REPORT INFORMATION
  Report Type: Spontaneous
  Country: US (occurrence: US)
  Receive Date: 20190515
  Receipt Date: 20190618
  Transmission Date: 20190711
  Serious: No
  Sender: FDA-Public Use
  Company Number: US-CELGENEUS-USA-20190502440

PATIENT
  Age: 70 Year
  Sex: Male

DRUGS (2)
  1. OTEZLA [Suspect]
     Active Substance: APREMILAST
     Indication: PSORIASIS
     Dosage: 30 MILLIGRAM
     Route: 048
     Dates: start: 20190322
  2. OTEZLA [Suspect]
     Active Substance: APREMILAST
     Dosage: 1 TABLET ON ODD DAYS AND 2 ON EVEN DAYS (30 AND 60 MG)
     Route: 048
     Dates: start: 2019

REACTIONS (1)
  - Food poisoning [Not Recovered/Not Resolved]

NARRATIVE: CASE EVENT DATE: 20190430
